FAERS Safety Report 17868857 (Version 1)
Quarter: 2020Q2

REPORT INFORMATION
  Report Type: Report from Study
  Country: None (occurrence: DE)
  Receive Date: 20200607
  Receipt Date: 20200607
  Transmission Date: 20200714
  Serious: Yes (Hospitalization)
  Sender: FDA-Public Use
  Company Number: DE-ABBVIE-20K-062-3429780-00

PATIENT
  Age: 68 Year
  Sex: Female

DRUGS (2)
  1. NOVAMINSULFON [Suspect]
     Active Substance: METAMIZOLE
     Indication: BACK PAIN
     Dosage: DROPS
     Route: 065
  2. DUODOPA [Suspect]
     Active Substance: CARBIDOPA\LEVODOPA
     Indication: PARKINSON^S DISEASE
     Dosage: MD 5 ML; CRD 3.1 ML/ H; CRN 2 ML/ H; ED 1 ML
     Route: 050
     Dates: start: 20171114

REACTIONS (3)
  - Alopecia [Not Recovered/Not Resolved]
  - Back pain [Not Recovered/Not Resolved]
  - Fall [Not Recovered/Not Resolved]

NARRATIVE: CASE EVENT DATE: 202004
